FAERS Safety Report 5735685-0 (Version None)
Quarter: 2008Q2

REPORT INFORMATION
  Report Type: 
  Country: None (occurrence: None)
  Receive Date: 20080512
  Receipt Date: 20080502
  Transmission Date: 20081010
  Serious: Yes (Disabling, Congenital Anomaly)
  Sender: FDA-Public Use
  Company Number: GB-ABBOTT-08P-167-0450260-00

PATIENT
  Sex: Male
  Weight: 28.2 kg

DRUGS (1)
  1. VALPROIC ACID [Suspect]
     Indication: DRUG EXPOSURE DURING PREGNANCY
     Route: 064

REACTIONS (16)
  - APRAXIA [None]
  - CONGENITAL NOSE MALFORMATION [None]
  - DEVELOPMENTAL COORDINATION DISORDER [None]
  - DRUG EXPOSURE DURING PREGNANCY [None]
  - DYSMORPHISM [None]
  - FOETAL ANTICONVULSANT SYNDROME [None]
  - HAIR DISORDER [None]
  - HEARING IMPAIRED [None]
  - HYPERACUSIS [None]
  - LIP DISORDER [None]
  - MOOD SWINGS [None]
  - MOVEMENT DISORDER [None]
  - MYOPIA [None]
  - PANIC ATTACK [None]
  - SPEECH DISORDER DEVELOPMENTAL [None]
  - TREMOR [None]
